FAERS Safety Report 6950314-6 (Version None)
Quarter: 2010Q3

REPORT INFORMATION
  Report Type: 
  Country: None (occurrence: None)
  Receive Date: 20100828
  Receipt Date: 20100202
  Transmission Date: 20110219
  Serious: No
  Sender: FDA-Public Use
  Company Number: US-ABBOTT-10P-163-0624265-00

PATIENT
  Sex: Male
  Weight: 88.076 kg

DRUGS (6)
  1. NIASPAN [Suspect]
     Indication: STENT PLACEMENT
     Dates: start: 20070301
  2. NIASPAN [Suspect]
     Indication: BLOOD CHOLESTEROL INCREASED
     Dates: start: 20100127
  3. LIPITOR [Concomitant]
     Indication: BLOOD CHOLESTEROL INCREASED
  4. ALTACE [Concomitant]
     Indication: CORONARY ARTERIAL STENT INSERTION
  5. TOPROL-XL [Concomitant]
     Indication: CORONARY ARTERIAL STENT INSERTION
  6. LOVAZA [Concomitant]
     Indication: PRODUCT USED FOR UNKNOWN INDICATION

REACTIONS (2)
  - HOT FLUSH [None]
  - PLATELET COUNT DECREASED [None]
